FAERS Safety Report 7602067-6 (Version None)
Quarter: 2011Q3

REPORT INFORMATION
  Report Type: 
  Country: None (occurrence: None)
  Receive Date: 20110711
  Receipt Date: 20110708
  Transmission Date: 20111222
  Serious: Yes (Other)
  Sender: FDA-Public Use
  Company Number: CHPA2011US07158

PATIENT
  Age: 56 Year
  Sex: Female
  Weight: 81.633 kg

DRUGS (2)
  1. DRUG THERAPY NOS [Concomitant]
     Indication: COUGH
     Dosage: UNK, UNK
     Route: 048
     Dates: start: 20110504, end: 20110501
  2. BUCKLEY'S COUGH MIXTURE [Suspect]
     Indication: COUGH
     Dosage: 1 TSP, UNK
     Route: 048
     Dates: start: 20110503, end: 20110504

REACTIONS (4)
  - PRODUCT QUALITY ISSUE [None]
  - PNEUMONIA [None]
  - VOMITING [None]
  - DRUG INEFFECTIVE [None]
